FAERS Safety Report 7044341-0 (Version None)
Quarter: 2010Q4

REPORT INFORMATION
  Report Type: 
  Country: None (occurrence: None)
  Receive Date: 20101014
  Receipt Date: 20100615
  Transmission Date: 20110411
  Serious: No
  Sender: FDA-Public Use
  Company Number: 2010BI020242

PATIENT
  Age: 46 Year
  Sex: Female

DRUGS (1)
  1. AVONEX [Suspect]
     Indication: MULTIPLE SCLEROSIS
     Route: 030
     Dates: start: 20021220

REACTIONS (2)
  - STRESS [None]
  - TREMOR [None]
